FAERS Safety Report 7201215-X (Version None)
Quarter: 2010Q4

REPORT INFORMATION
  Report Type: 
  Country: None (occurrence: None)
  Receive Date: 20101227
  Receipt Date: 20101227
  Transmission Date: 20110411
  Serious: Yes (Hospitalization)
  Sender: FDA-Public Use
  Company Number: None

PATIENT
  Sex: Male
  Weight: 4.5 kg

DRUGS (9)
  1. CARBOPLATIN [Suspect]
     Dosage: 80 MG
  2. ETOPOSIDE [Suspect]
     Dosage: 51 MG
  3. G-CSF (FILGRASTIM, AMGEN) [Suspect]
     Dosage: 500 MCG SQ/IV
     Route: 058
  4. DOPAMINE [Concomitant]
  5. FLUCONAZOLE [Concomitant]
  6. HYDROCORTISONE [Concomitant]
  7. VANCOMYCIN [Concomitant]
  8. AMPICILLIAN [Concomitant]
  9. CEFEPIME [Concomitant]

REACTIONS (11)
  - CONTINUOUS HAEMODIAFILTRATION [None]
  - DISSEMINATED INTRAVASCULAR COAGULATION [None]
  - ENTEROCOCCUS TEST POSITIVE [None]
  - HEPATORENAL FAILURE [None]
  - HYPOTENSION [None]
  - NEUTROPENIA [None]
  - PHARYNGEAL HAEMORRHAGE [None]
  - RESPIRATORY FAILURE [None]
  - SYSTEMIC INFLAMMATORY RESPONSE SYNDROME [None]
  - THROMBOCYTOPENIA [None]
  - VENOOCCLUSIVE LIVER DISEASE [None]
